FAERS Safety Report 5453903-3 (Version None)
Quarter: 2007Q3

REPORT INFORMATION
  Report Type: 
  Country: None (occurrence: None)
  Receive Date: 20070917
  Receipt Date: 20070917
  Transmission Date: 20080115
  Serious: Yes (Other)
  Sender: FDA-Public Use
  Company Number: D0054568A

PATIENT
  Age: 19 Month
  Sex: Female

DRUGS (1)
  1. ZINACEF [Suspect]
     Route: 065

REACTIONS (1)
  - DEAFNESS [None]
